FAERS Safety Report 12476278 (Version 1)
Quarter: 2016Q2

REPORT INFORMATION
  Report Type: Spontaneous
  Country: JP (occurrence: JP)
  Receive Date: 20160617
  Receipt Date: 20160617
  Transmission Date: 20160815
  Serious: Yes (Death, Other)
  Sender: FDA-Public Use
  Company Number: PHJP1900JP002128

PATIENT
  Age: 39 Year
  Sex: Male

DRUGS (27)
  1. SANDIMMUN [Suspect]
     Active Substance: CYCLOSPORINE
     Dosage: 100 MG, QD
     Route: 048
     Dates: start: 19881117, end: 19881117
  2. SANDIMMUN [Suspect]
     Active Substance: CYCLOSPORINE
     Dosage: 50 MG, QD
     Route: 048
     Dates: start: 19930806, end: 19930817
  3. URINORM [Concomitant]
     Active Substance: BENZBROMARONE
     Indication: HYPERURICAEMIA
     Dosage: 50 MG, QD
     Route: 048
     Dates: start: 19920919, end: 19930521
  4. PREDONINE [Concomitant]
     Active Substance: PREDNISOLONE\PREDNISOLONE ACETATE\PREDNISOLONE SODIUM SUCCINATE
     Indication: IMMUNOSUPPRESSION
     Dosage: 60 MG, QD
     Route: 048
     Dates: start: 19930818
  5. SANDIMMUN [Suspect]
     Active Substance: CYCLOSPORINE
     Dosage: 200 MG, QD
     Route: 048
     Dates: start: 19930917, end: 19930924
  6. SANDIMMUN [Suspect]
     Active Substance: CYCLOSPORINE
     Dosage: 50 MG, QD
     Route: 048
     Dates: start: 19931121, end: 19931124
  7. MEDROL [Suspect]
     Active Substance: METHYLPREDNISOLONE
     Dosage: 8 MG, QD
     Route: 048
     Dates: start: 19930818
  8. MEDROL [Suspect]
     Active Substance: METHYLPREDNISOLONE
     Dosage: 6 MG, QD
     Route: 048
     Dates: end: 19930724
  9. AZANIN [Suspect]
     Active Substance: AZATHIOPRINE
     Dosage: 50 MG, QD
     Route: 048
     Dates: start: 19881108, end: 19930817
  10. TENORMIN [Concomitant]
     Active Substance: ATENOLOL
     Dosage: 50 MG, QD
     Route: 048
     Dates: start: 19920919, end: 19930818
  11. SANDIMMUN [Suspect]
     Active Substance: CYCLOSPORINE
     Indication: IMMUNOSUPPRESSION
     Dosage: 330 MG, QD
     Route: 048
     Dates: start: 19881031, end: 19881031
  12. MEDROL [Suspect]
     Active Substance: METHYLPREDNISOLONE
     Dosage: 8 MG, QD
     Route: 048
     Dates: start: 19930806, end: 19930818
  13. FOIPAN [Concomitant]
     Active Substance: CAMOSTAT MESYLATE
     Dosage: 6 MG, QD
     Route: 048
     Dates: start: 19930818
  14. SANDIMMUN [Suspect]
     Active Substance: CYCLOSPORINE
     Dosage: 330 MG, QD
     Route: 048
     Dates: start: 19881102, end: 19881116
  15. SANDIMMUN [Suspect]
     Active Substance: CYCLOSPORINE
     Dosage: 200 MG, QD
     Route: 048
     Dates: start: 19881118, end: 19930805
  16. SANDIMMUN [Suspect]
     Active Substance: CYCLOSPORINE
     Dosage: 100 MG, QD
     Route: 048
     Dates: start: 19931118, end: 19931120
  17. MEDROL [Suspect]
     Active Substance: METHYLPREDNISOLONE
     Indication: IMMUNOSUPPRESSION
     Dosage: 6 MG, QD
     Route: 048
     Dates: start: 19881103, end: 19920420
  18. AZANIN [Suspect]
     Active Substance: AZATHIOPRINE
     Indication: IMMUNOSUPPRESSION
     Dosage: 100 MG, QD
     Route: 048
     Dates: start: 19881031, end: 19881107
  19. SOLU-MEDROL [Suspect]
     Active Substance: METHYLPREDNISOLONE SODIUM SUCCINATE
     Indication: IMMUNOSUPPRESSION
     Dosage: 125 MG, QD
     Route: 065
     Dates: start: 19881101, end: 19881102
  20. MEDROL [Suspect]
     Active Substance: METHYLPREDNISOLONE
     Dosage: 20 MG, QD
     Route: 048
     Dates: start: 19930725, end: 19930730
  21. URINORM [Concomitant]
     Active Substance: BENZBROMARONE
     Dosage: 25 MG, QD
     Route: 048
     Dates: start: 19930522, end: 19930818
  22. SOLU-MEDROL [Suspect]
     Active Substance: METHYLPREDNISOLONE SODIUM SUCCINATE
     Dosage: 500 MG, QD
     Route: 065
     Dates: start: 19930731, end: 19930804
  23. FOIPAN [Concomitant]
     Active Substance: CAMOSTAT MESYLATE
     Indication: GLOMERULONEPHRITIS CHRONIC
     Dosage: 6 MG, QD
     Route: 048
     Dates: start: 19930719, end: 19930817
  24. SANDIMMUN [Suspect]
     Active Substance: CYCLOSPORINE
     Dosage: 110 MG, QD
     Dates: start: 19881101, end: 19881101
  25. SANDIMMUN [Suspect]
     Active Substance: CYCLOSPORINE
     Dosage: 200 MG, QD
     Route: 048
     Dates: start: 19931016, end: 19931026
  26. MEDROL [Suspect]
     Active Substance: METHYLPREDNISOLONE
     Dosage: 6 MG, QD
     Route: 048
     Dates: start: 19920421, end: 19930817
  27. TENORMIN [Concomitant]
     Active Substance: ATENOLOL
     Indication: BLOOD PRESSURE INCREASED
     Dosage: 50 MG, QD
     Route: 048
     Dates: start: 19881209, end: 19900225

REACTIONS (1)
  - Lymphoma [Fatal]
